FAERS Safety Report 19420835 (Version 1)
Quarter: 2021Q2

REPORT INFORMATION
  Report Type: Spontaneous
  Country: AR (occurrence: AR)
  Receive Date: 20210616
  Receipt Date: 20210616
  Transmission Date: 20210717
  Serious: Yes (Hospitalization, Other)
  Sender: FDA-Public Use
  Company Number: AR-ALKEM LABORATORIES LIMITED-AR-ALKEM-2021-03384

PATIENT
  Age: 24 Year
  Sex: Male
  Weight: 75 kg

DRUGS (5)
  1. BELATACEPT [Suspect]
     Active Substance: BELATACEPT
     Indication: IMMUNOSUPPRESSANT DRUG THERAPY
     Dosage: 500 MILLIGRAM, ONCE A MONTH
     Route: 042
  2. MYCOPHENOLATE MOFETIL. [Suspect]
     Active Substance: MYCOPHENOLATE MOFETIL
     Dosage: 1440 MILLIGRAM, QD
     Route: 065
  3. MEPREDNISONE [Suspect]
     Active Substance: MEPREDNISONE
     Indication: IMMUNOSUPPRESSANT DRUG THERAPY
     Dosage: 4 MILLIGRAM, QD
     Route: 048
  4. ECULIZUMAB [Concomitant]
     Active Substance: ECULIZUMAB
     Indication: ATYPICAL HAEMOLYTIC URAEMIC SYNDROME
     Dosage: 900 MILLIGRAM, EVERY 2 WEEKS
     Route: 065
  5. MYCOPHENOLATE MOFETIL. [Suspect]
     Active Substance: MYCOPHENOLATE MOFETIL
     Indication: IMMUNOSUPPRESSANT DRUG THERAPY
     Dosage: 720 MILLIGRAM, QD
     Route: 048

REACTIONS (4)
  - Thrombotic microangiopathy [Recovered/Resolved]
  - COVID-19 pneumonia [Recovered/Resolved]
  - Respiratory failure [Recovered/Resolved]
  - COVID-19 [Recovered/Resolved]
